FAERS Safety Report 6262516-5 (Version None)
Quarter: 2009Q3

REPORT INFORMATION
  Report Type: 
  Country: None (occurrence: None)
  Receive Date: 20090709
  Receipt Date: 20090701
  Transmission Date: 20100115
  Serious: Yes (Death, Hospitalization)
  Sender: FDA-Public Use
  Company Number: DE-ELI_LILLY_AND_COMPANY-DE200904001970

PATIENT
  Age: 80 Year
  Sex: Female

DRUGS (6)
  1. BYETTA [Suspect]
     Indication: TYPE 2 DIABETES MELLITUS
     Dosage: 5 UG, 2/D
     Route: 058
     Dates: start: 20090201, end: 20090302
  2. TAVOR [Concomitant]
  3. AQUAPHOR [Concomitant]
  4. PANTOZOL [Concomitant]
  5. ALOPURINOL [Concomitant]
  6. OMEPRAZOLE [Concomitant]

REACTIONS (11)
  - ABDOMINAL PAIN [None]
  - AGITATION [None]
  - CARDIAC DEATH [None]
  - DIARRHOEA [None]
  - DIZZINESS [None]
  - GASTROENTERITIS [None]
  - HYPOGLYCAEMIA [None]
  - HYPOKALAEMIA [None]
  - NAUSEA [None]
  - SUICIDAL IDEATION [None]
  - URINARY TRACT INFECTION [None]
